FAERS Safety Report 6059386-7 (Version None)
Quarter: 2009Q1

REPORT INFORMATION
  Report Type: 
  Country: None (occurrence: None)
  Receive Date: 20090128
  Receipt Date: 20090128
  Transmission Date: 20090719
  Serious: No
  Sender: FDA-Public Use
  Company Number: None

PATIENT
  Age: 80 Year
  Sex: Male

DRUGS (1)
  1. GADOBENATE DIMEGLUMINE BRACCO DIAGNOSTICS [Suspect]
     Dosage: IV
     Route: 042
     Dates: start: 20090125, end: 20090125

REACTIONS (2)
  - CHEST DISCOMFORT [None]
  - NAUSEA [None]
